FAERS Safety Report 7592411-0 (Version None)
Quarter: 2011Q3

REPORT INFORMATION
  Report Type: 
  Country: None (occurrence: None)
  Receive Date: 20110705
  Receipt Date: 20110705
  Transmission Date: 20111222
  Serious: No
  Sender: FDA-Public Use
  Company Number: None

PATIENT
  Sex: Female

DRUGS (2)
  1. PROTONIX [Suspect]
     Indication: GASTROOESOPHAGEAL REFLUX DISEASE
     Dosage: 40MG BID PO
     Route: 048
     Dates: start: 20060101, end: 20110101
  2. PROTONIX [Suspect]
     Indication: GASTRITIS
     Dosage: 40MG BID PO
     Route: 048
     Dates: start: 20060101, end: 20110101

REACTIONS (1)
  - DRUG EFFECT DECREASED [None]
